FAERS Safety Report 6867236-1 (Version None)
Quarter: 2010Q2

REPORT INFORMATION
  Report Type: 
  Country: None (occurrence: None)
  Receive Date: 20100528
  Receipt Date: 20100427
  Transmission Date: 20101027
  Serious: No
  Sender: FDA-Public Use
  Company Number: 2010053931

PATIENT
  Sex: Female

DRUGS (2)
  1. TOVIAZ [Suspect]
     Indication: HYPERTONIC BLADDER
     Dosage: 8 MG, ONCE DAILY, ORAL
     Route: 048
     Dates: start: 20100401
  2. EPLERENONE (EPLERENONE) [Concomitant]

REACTIONS (1)
  - DYSURIA [None]
